FAERS Safety Report 4584006-8 (Version None)
Quarter: 2005Q1

REPORT INFORMATION
  Report Type: 
  Country: None (occurrence: None)
  Receive Date: 20050125
  Receipt Date: 20041105
  Transmission Date: 20050727
  Serious: No
  Sender: FDA-Public Use
  Company Number: USA041183306

PATIENT
  Sex: Female

DRUGS (2)
  1. FORTEO [Suspect]
     Indication: OSTEOPOROSIS
  2. TETRACYCLINE [Concomitant]

REACTIONS (2)
  - DRUG INTERACTION [None]
  - SKIN DISCOLOURATION [None]
